FAERS Safety Report 14647805 (Version 2)
Quarter: 2018Q1

REPORT INFORMATION
  Report Type: Report from Study
  Country: CL (occurrence: CL)
  Receive Date: 20180316
  Receipt Date: 20180329
  Transmission Date: 20180509
  Serious: Yes (Other)
  Sender: FDA-Public Use
  Company Number: CL-UCBSA-2018010763

PATIENT
  Age: 23 Year
  Sex: Male

DRUGS (6)
  1. PREDNISOLONE. [Concomitant]
     Active Substance: PREDNISOLONE
     Indication: BEHCET^S SYNDROME
     Dosage: 5 MG
     Route: 048
  2. PROPANOLOL [Concomitant]
     Active Substance: PROPRANOLOL HYDROCHLORIDE
     Indication: BEHCET^S SYNDROME
     Dosage: UNK
     Route: 048
  3. SULFAMETHOXAZOLE W/TRIMETHOPRIM [Concomitant]
     Active Substance: SULFAMETHOXAZOLE\TRIMETHOPRIM
     Indication: BEHCET^S SYNDROME
     Dosage: UNK
     Route: 048
  4. DORZOLAMIDE W/TIMOLOL [Concomitant]
     Active Substance: DORZOLAMIDE HYDROCHLORIDE\TIMOLOL MALEATE
     Indication: BEHCET^S SYNDROME
     Dosage: 2 GTT, ONCE DAILY (QD)
     Route: 047
  5. CERTOLIZUMAB PEGOL [Suspect]
     Active Substance: CERTOLIZUMAB PEGOL
     Indication: BEHCET^S SYNDROME
     Dosage: 200 MG, EV 4 WEEKS
     Route: 058
     Dates: start: 20160331
  6. BRIMONIDINE [Concomitant]
     Active Substance: BRIMONIDINE TARTRATE
     Indication: BEHCET^S SYNDROME
     Dosage: 3 GTT, ONCE DAILY (QD)
     Route: 047

REACTIONS (2)
  - Intentional product misuse [Unknown]
  - Tonsillitis [Recovered/Resolved]

NARRATIVE: CASE EVENT DATE: 20160331
